FAERS Safety Report 10069152 (Version 1)
Quarter: 2014Q2

REPORT INFORMATION
  Report Type: Spontaneous
  Country: IT (occurrence: IT)
  Receive Date: 20140409
  Receipt Date: 20140409
  Transmission Date: 20141212
  Serious: Yes (Hospitalization)
  Sender: FDA-Public Use
  Company Number: PHHY2014IT041295

PATIENT
  Age: 58 Year
  Sex: Male

DRUGS (1)
  1. LEVODOPA+CARBIDOPA [Suspect]
     Indication: PARKINSON^S DISEASE
     Dosage: 12 DF, ONCE/SINGLE
     Route: 048
     Dates: start: 20131123, end: 20131123

REACTIONS (2)
  - Medication error [Recovering/Resolving]
  - Neurological symptom [Recovering/Resolving]
